FAERS Safety Report 10423065 (Version 2)
Quarter: 2014Q4

REPORT INFORMATION
  Report Type: Spontaneous
  Country: US (occurrence: None)
  Receive Date: 20140722
  Receipt Date: 20141121
  Transmission Date: 20150528
  Serious: No
  Sender: FDA-Public Use
  Company Number: 163-10004-14055326

PATIENT
  Age: 57 Year
  Sex: Male
  Weight: 70.31 kg

DRUGS (5)
  1. SYNTHROID [Concomitant]
     Active Substance: LEVOTHYROXINE SODIUM
  2. ATENOLOL(ATENOLOL)(TABLETS) [Concomitant]
  3. OTEZLA [Suspect]
     Active Substance: APREMILAST
     Indication: PSORIATIC ARTHROPATHY
     Dosage: 2 IN 1 D
     Route: 048
     Dates: start: 20140505
  4. HYDROXYCHLOROQUINE(HYDROXYCHLOROQUINE)(TABLETS) [Concomitant]
  5. ADDERALL XR(OBETROL) (CAPSULES) [Concomitant]

REACTIONS (2)
  - Weight decreased [None]
  - Diarrhoea [None]

NARRATIVE: CASE EVENT DATE: 20140505
